FAERS Safety Report 5563878-4 (Version None)
Quarter: 2007Q4

REPORT INFORMATION
  Report Type: 
  Country: None (occurrence: None)
  Receive Date: 20071217
  Receipt Date: 20071010
  Transmission Date: 20080405
  Serious: No
  Sender: FDA-Public Use
  Company Number: US-ASTRAZENECA-2007UW23590

PATIENT
  Age: 66 Year
  Sex: Female

DRUGS (9)
  1. CRESTOR [Suspect]
     Route: 048
     Dates: start: 20060401
  2. CRESTOR [Suspect]
     Route: 048
     Dates: start: 20070101
  3. CRESTOR [Suspect]
     Route: 048
  4. ATACAND [Concomitant]
     Route: 048
  5. ATENOLOL [Concomitant]
     Route: 048
  6. PLAVIX [Concomitant]
  7. HYDROCHLOROTHIAZIDE [Concomitant]
  8. EFFEXOR [Concomitant]
  9. AMBIEN [Concomitant]

REACTIONS (1)
  - GOUT [None]
